FAERS Safety Report 4790381-1 (Version None)
Quarter: 2005Q4

REPORT INFORMATION
  Report Type: 
  Country: None (occurrence: None)
  Receive Date: 20051005
  Receipt Date: 20050926
  Transmission Date: 20060501
  Serious: Yes (Disabling, Other)
  Sender: FDA-Public Use
  Company Number: 2005118298

PATIENT
  Age: 85 Year
  Sex: Female
  Weight: 77.1115 kg

DRUGS (1)
  1. NEURONTIN [Suspect]
     Indication: BURNING SENSATION
     Dosage: 300 MG (100 MG, 3 IN 1 D)
     Dates: start: 20050201

REACTIONS (4)
  - CATARACT [None]
  - EYE IRRITATION [None]
  - MACULAR DEGENERATION [None]
  - VISION BLURRED [None]
